FAERS Safety Report 5362054-8 (Version None)
Quarter: 2007Q2

REPORT INFORMATION
  Report Type: 
  Country: None (occurrence: None)
  Receive Date: 20070615
  Receipt Date: 20070615
  Transmission Date: 20071010
  Serious: Yes (Other)
  Sender: FDA-Public Use
  Company Number: None

PATIENT
  Age: 64 Year
  Sex: Female
  Weight: 120.2032 kg

DRUGS (1)
  1. SINGULAIR [Suspect]
     Indication: ASTHMA
     Dosage: 1  PER DAY PO
     Route: 048
     Dates: start: 20070509, end: 20070606

REACTIONS (8)
  - ABNORMAL DREAMS [None]
  - ANXIETY [None]
  - CONTUSION [None]
  - INCREASED TENDENCY TO BRUISE [None]
  - MEMORY IMPAIRMENT [None]
  - NIGHTMARE [None]
  - OEDEMA PERIPHERAL [None]
  - WEIGHT INCREASED [None]
